FAERS Safety Report 18464350 (Version 1)
Quarter: 2020Q4

REPORT INFORMATION
  Report Type: Report from Study
  Country: KR (occurrence: KR)
  Receive Date: 20201104
  Receipt Date: 20201104
  Transmission Date: 20210114
  Serious: Yes (Hospitalization)
  Sender: FDA-Public Use
  Company Number: KR-JAZZ-2020-KR-013244

PATIENT
  Age: 8 Year
  Sex: Male

DRUGS (64)
  1. DEFITELIO [Suspect]
     Active Substance: DEFIBROTIDE SODIUM
     Dosage: 150 MILLIGRAM, QID
     Route: 042
     Dates: start: 20200818, end: 20200829
  2. CHLORPHENIRAMINE [CHLORPHENAMINE] [Concomitant]
     Active Substance: CHLORPHENIRAMINE
     Dosage: 2 MILLIGRAM, QD
     Route: 042
     Dates: start: 20200807, end: 20200807
  3. CHLORPHENIRAMINE [CHLORPHENAMINE] [Concomitant]
     Active Substance: CHLORPHENIRAMINE
     Dosage: 2 MILLIGRAM, QD
     Route: 042
     Dates: start: 20200813, end: 20200813
  4. FUROSEMIDE. [Concomitant]
     Active Substance: FUROSEMIDE
     Dosage: 10 MILLIGRAM
     Route: 048
     Dates: start: 20200821, end: 20200821
  5. FUROSEMIDE. [Concomitant]
     Active Substance: FUROSEMIDE
     Dosage: 10 MILLIGRAM
     Route: 048
     Dates: start: 20200823, end: 20200824
  6. CARVEDILOL. [Concomitant]
     Active Substance: CARVEDILOL
     Indication: BLOOD PRESSURE ABNORMAL
     Dosage: 3.125 MILLIGRAM, BID
     Route: 048
     Dates: start: 20200731
  7. DEFITELIO [Suspect]
     Active Substance: DEFIBROTIDE SODIUM
     Dosage: 110 MILLIGRAM, QID
     Route: 042
     Dates: start: 20200924, end: 20200926
  8. DEFITELIO [Suspect]
     Active Substance: DEFIBROTIDE SODIUM
     Dosage: 110 MILLIGRAM, QID
     Route: 042
     Dates: start: 20200928, end: 20200928
  9. HYDROCHLOROTHIAZIDE. [Concomitant]
     Active Substance: HYDROCHLOROTHIAZIDE
     Indication: POLYURIA
     Dosage: 6.25 MILLIGRAM, QD
     Route: 048
     Dates: start: 20200722, end: 20200726
  10. CHLORPHENIRAMINE [CHLORPHENAMINE] [Concomitant]
     Active Substance: CHLORPHENIRAMINE
     Indication: ANTIALLERGIC THERAPY
     Dosage: 2 MILLIGRAM, QD
     Route: 042
     Dates: start: 20200723, end: 20200725
  11. FUROSEMIDE. [Concomitant]
     Active Substance: FUROSEMIDE
     Dosage: 10 MILLIGRAM
     Route: 048
     Dates: start: 20200807, end: 20200807
  12. FUROSEMIDE. [Concomitant]
     Active Substance: FUROSEMIDE
     Dosage: 2 MILLIGRAM
     Route: 048
     Dates: start: 20200810, end: 20200811
  13. FUROSEMIDE. [Concomitant]
     Active Substance: FUROSEMIDE
     Dosage: 10 MILLIGRAM
     Route: 048
     Dates: start: 20200813, end: 20200813
  14. FUROSEMIDE. [Concomitant]
     Active Substance: FUROSEMIDE
     Dosage: 10 MILLIGRAM
     Route: 048
     Dates: start: 20200815, end: 20200816
  15. SPIRONOLACTONE. [Concomitant]
     Active Substance: SPIRONOLACTONE
     Dosage: 6.25 MILLIGRAM, BID
     Route: 048
     Dates: start: 20200810, end: 20200811
  16. DEFITELIO [Suspect]
     Active Substance: DEFIBROTIDE SODIUM
     Indication: VENOOCCLUSIVE DISEASE
     Dosage: 110 MILLIGRAM, QID
     Route: 042
     Dates: start: 20200724, end: 20200817
  17. DEFITELIO [Suspect]
     Active Substance: DEFIBROTIDE SODIUM
     Dosage: 150 MILLIGRAM, QID
     Route: 042
     Dates: start: 20200903, end: 20200911
  18. CHLORPHENIRAMINE [CHLORPHENAMINE] [Concomitant]
     Active Substance: CHLORPHENIRAMINE
     Dosage: 2 MILLIGRAM, QD
     Route: 042
     Dates: start: 20200811, end: 20200811
  19. CHLORPHENIRAMINE [CHLORPHENAMINE] [Concomitant]
     Active Substance: CHLORPHENIRAMINE
     Dosage: 2 MILLIGRAM, QD
     Route: 042
     Dates: start: 20200825, end: 20200825
  20. LENOGRASTIM [Concomitant]
     Active Substance: LENOGRASTIM
     Dosage: 100 MICROGRAM, QD
     Route: 042
     Dates: start: 20200801, end: 20200801
  21. LENOGRASTIM [Concomitant]
     Active Substance: LENOGRASTIM
     Dosage: 100 MICROGRAM, QD
     Route: 042
     Dates: start: 20200810, end: 20200810
  22. FUROSEMIDE. [Concomitant]
     Active Substance: FUROSEMIDE
     Dosage: 10 MILLIGRAM
     Route: 048
     Dates: start: 20200817, end: 20200819
  23. SPIRONOLACTONE. [Concomitant]
     Active Substance: SPIRONOLACTONE
     Dosage: 6.25 MILLIGRAM, BID
     Route: 048
     Dates: start: 20200731, end: 20200805
  24. ENALAPRIL [Concomitant]
     Active Substance: ENALAPRIL
     Indication: BLOOD PRESSURE ABNORMAL
     Dosage: 2.5 MILLIGRAM, QD
     Route: 048
     Dates: start: 20200720, end: 20200807
  25. FUROSEMIDE. [Concomitant]
     Active Substance: FUROSEMIDE
     Dosage: 10 MILLIGRAM
     Route: 048
     Dates: start: 20200731, end: 20200805
  26. FILGRASTIM [Concomitant]
     Active Substance: FILGRASTIM
     Dosage: 150 MICROGRAM, QD
     Route: 042
     Dates: start: 20200818, end: 20200818
  27. DOPAMINE [Concomitant]
     Active Substance: DOPAMINE HYDROCHLORIDE
     Indication: UNEVALUABLE THERAPY
     Dosage: 3 MICROGRAM/KILOGRAM/METRE/INCH, QD
     Route: 042
     Dates: start: 20200817, end: 20200826
  28. DEFITELIO [Suspect]
     Active Substance: DEFIBROTIDE SODIUM
     Dosage: 110 MILLIGRAM, QID
     Route: 042
     Dates: start: 20200830, end: 20200902
  29. DEFITELIO [Suspect]
     Active Substance: DEFIBROTIDE SODIUM
     Dosage: 110 MILLIGRAM, QID
     Route: 042
     Dates: start: 20201004
  30. AMLODIPINE [Concomitant]
     Active Substance: AMLODIPINE BESYLATE
     Indication: BLOOD PRESSURE MEASUREMENT
     Dosage: 2.5 MILLIGRAM, BID
     Route: 048
     Dates: start: 20200716, end: 20200716
  31. HEPARIN [Concomitant]
     Active Substance: HEPARIN SODIUM
     Dosage: 1800 INTERNATIONAL UNIT, QD
     Route: 042
     Dates: start: 20200803, end: 20200825
  32. CHLORPHENIRAMINE [CHLORPHENAMINE] [Concomitant]
     Active Substance: CHLORPHENIRAMINE
     Dosage: 2 MILLIGRAM, QD
     Route: 042
     Dates: start: 20200731, end: 20200731
  33. FILGRASTIM [Concomitant]
     Active Substance: FILGRASTIM
     Dosage: 150 MICROGRAM, QD
     Route: 042
     Dates: start: 20200824, end: 20200824
  34. AMLODIPINE [Concomitant]
     Active Substance: AMLODIPINE BESYLATE
     Dosage: 5 MILLIGRAM
     Route: 048
     Dates: start: 20200727
  35. URSODEOXYCHOLIC ACID [Concomitant]
     Active Substance: URSODIOL
     Indication: LIVER FUNCTION TEST ABNORMAL
     Dosage: 100 MILLIGRAM, TID
     Route: 048
     Dates: start: 20200717
  36. ALPROSTADIL. [Concomitant]
     Active Substance: ALPROSTADIL
     Indication: PROPHYLAXIS
     Dosage: 18 MICROGRAM, QD
     Route: 042
     Dates: start: 20200717, end: 20200825
  37. HEPARIN [Concomitant]
     Active Substance: HEPARIN SODIUM
     Indication: PROPHYLAXIS
     Dosage: 1800 INTERNATIONAL UNIT, QD
     Route: 042
     Dates: start: 20200717, end: 20200801
  38. CHLORPHENIRAMINE [CHLORPHENAMINE] [Concomitant]
     Active Substance: CHLORPHENIRAMINE
     Dosage: 2 MILLIGRAM, QD
     Route: 042
     Dates: start: 20200726, end: 20200726
  39. CHLORPHENIRAMINE [CHLORPHENAMINE] [Concomitant]
     Active Substance: CHLORPHENIRAMINE
     Dosage: 2 MILLIGRAM, QD
     Route: 042
     Dates: start: 20200728, end: 20200729
  40. CHLORPHENIRAMINE [CHLORPHENAMINE] [Concomitant]
     Active Substance: CHLORPHENIRAMINE
     Dosage: 2 MILLIGRAM, QD
     Route: 042
     Dates: start: 20200816, end: 20200816
  41. FUROSEMIDE. [Concomitant]
     Active Substance: FUROSEMIDE
     Dosage: 10 MILLIGRAM
     Route: 048
     Dates: start: 20200814, end: 20200815
  42. SPIRONOLACTONE. [Concomitant]
     Active Substance: SPIRONOLACTONE
     Dosage: 6.25 MILLIGRAM, BID
     Route: 048
     Dates: start: 20200813, end: 20200816
  43. SOLIRIS [Concomitant]
     Active Substance: ECULIZUMAB
     Indication: THROMBOTIC MICROANGIOPATHY
     Dosage: 600 MILLIGRAM, QD
     Route: 042
     Dates: start: 20200807, end: 20200807
  44. SOLIRIS [Concomitant]
     Active Substance: ECULIZUMAB
     Dosage: 600 MILLIGRAM, QD
     Route: 042
     Dates: start: 20200814, end: 20200814
  45. FILGRASTIM [Concomitant]
     Active Substance: FILGRASTIM
     Indication: NEUTROPHIL COUNT
     Dosage: 150 MICROGRAM, QD
     Route: 042
     Dates: start: 20200814, end: 20200814
  46. AMLODIPINE [Concomitant]
     Active Substance: AMLODIPINE BESYLATE
     Dosage: 2.5 MILLIGRAM, QD
     Route: 048
     Dates: start: 20200727
  47. CHLORPHENIRAMINE [CHLORPHENAMINE] [Concomitant]
     Active Substance: CHLORPHENIRAMINE
     Dosage: 2 MILLIGRAM, QD
     Route: 042
     Dates: start: 20200803, end: 20200805
  48. CHLORPHENIRAMINE [CHLORPHENAMINE] [Concomitant]
     Active Substance: CHLORPHENIRAMINE
     Dosage: 2 MILLIGRAM, QD
     Route: 042
     Dates: start: 20200815, end: 20200815
  49. CHLORPHENIRAMINE [CHLORPHENAMINE] [Concomitant]
     Active Substance: CHLORPHENIRAMINE
     Dosage: 2 MILLIGRAM, QD
     Route: 042
     Dates: start: 20200819, end: 20200819
  50. LENOGRASTIM [Concomitant]
     Active Substance: LENOGRASTIM
     Dosage: 100 MICROGRAM, QD
     Route: 042
     Dates: start: 20200728, end: 20200728
  51. DEFITELIO [Suspect]
     Active Substance: DEFIBROTIDE SODIUM
     Dosage: 110 MILLIGRAM, QID
     Route: 042
     Dates: start: 20200914, end: 20200921
  52. DEFITELIO [Suspect]
     Active Substance: DEFIBROTIDE SODIUM
     Dosage: 110 MILLIGRAM, QID
     Route: 042
     Dates: start: 20200930, end: 20200930
  53. AMLODIPINE [Concomitant]
     Active Substance: AMLODIPINE BESYLATE
     Dosage: 5 MILLIGRAM, QD
     Route: 048
     Dates: start: 20200717, end: 20200726
  54. ENALAPRIL [Concomitant]
     Active Substance: ENALAPRIL
     Dosage: 2.5 MILLIGRAM, QD
     Route: 048
     Dates: start: 20200809, end: 20200810
  55. CHLORPHENIRAMINE [CHLORPHENAMINE] [Concomitant]
     Active Substance: CHLORPHENIRAMINE
     Dosage: 2 MILLIGRAM, QD
     Route: 042
     Dates: start: 20200802, end: 20200802
  56. CHLORPHENIRAMINE [CHLORPHENAMINE] [Concomitant]
     Active Substance: CHLORPHENIRAMINE
     Dosage: 2 MILLIGRAM, QD
     Route: 042
     Dates: start: 20200809, end: 20200809
  57. CHLORPHENIRAMINE [CHLORPHENAMINE] [Concomitant]
     Active Substance: CHLORPHENIRAMINE
     Dosage: 2 MILLIGRAM, QD
     Route: 042
     Dates: start: 20200821, end: 20200823
  58. LENOGRASTIM [Concomitant]
     Active Substance: LENOGRASTIM
     Indication: NEUTROPHIL COUNT
     Dosage: 100 MICROGRAM, QD
     Route: 042
     Dates: start: 20200724, end: 20200724
  59. LENOGRASTIM [Concomitant]
     Active Substance: LENOGRASTIM
     Dosage: 100 MICROGRAM, QD
     Route: 042
     Dates: start: 20200805, end: 20200805
  60. FUROSEMIDE. [Concomitant]
     Active Substance: FUROSEMIDE
     Indication: POLYURIA
     Dosage: 10 MILLIGRAM
     Route: 048
     Dates: start: 20200726, end: 20200729
  61. MAGNESIUM LACTATE;PYRIDOXINE HYDROCHLORIDE [Concomitant]
     Active Substance: MAGNESIUM LACTATE\PYRIDOXINE HYDROCHLORIDE
     Indication: PROPHYLAXIS
     Dosage: UNK
     Route: 048
     Dates: start: 20200727, end: 20200927
  62. SPIRONOLACTONE. [Concomitant]
     Active Substance: SPIRONOLACTONE
     Indication: POLYURIA
     Dosage: 6.25 MILLIGRAM, BID
     Route: 048
     Dates: start: 20200727, end: 20200729
  63. SPIRONOLACTONE. [Concomitant]
     Active Substance: SPIRONOLACTONE
     Dosage: 12.5 MILLIGRAM, BID
     Route: 048
     Dates: start: 20200817, end: 20200903
  64. AMOXICILLIN. [Concomitant]
     Active Substance: AMOXICILLIN
     Indication: ANTIBIOTIC THERAPY
     Dosage: 7 MILLILITER, BID
     Route: 048
     Dates: start: 20200807, end: 20200928

REACTIONS (1)
  - Haematuria [Not Recovered/Not Resolved]

NARRATIVE: CASE EVENT DATE: 20200826
